FAERS Safety Report 23912334 (Version 2)
Quarter: 2024Q2

REPORT INFORMATION
  Report Type: Spontaneous
  Country: IN (occurrence: IN)
  Receive Date: 20240528
  Receipt Date: 20240607
  Transmission Date: 20240715
  Serious: Yes (Death)
  Sender: FDA-Public Use
  Company Number: IN-GE HEALTHCARE-2024CSU005509

PATIENT
  Age: 68 Year
  Sex: Female
  Weight: 75 kg

DRUGS (2)
  1. OMNIPAQUE [Suspect]
     Active Substance: IOHEXOL
     Indication: Computerised tomogram thorax
     Dosage: 80 ML, TOTAL
     Route: 042
     Dates: start: 20240520, end: 20240520
  2. OMNIPAQUE [Suspect]
     Active Substance: IOHEXOL
     Indication: Computerised tomogram abdomen

REACTIONS (2)
  - Shock [Fatal]
  - Chills [Fatal]

NARRATIVE: CASE EVENT DATE: 20240520
